FAERS Safety Report 8369864-3 (Version None)
Quarter: 2012Q1

REPORT INFORMATION
  Report Type: 
  Country: None (occurrence: None)
  Receive Date: 20120323
  Receipt Date: 20110517
  Transmission Date: 20120608
  Serious: Yes (Hospitalization, Other)
  Sender: FDA-Public Use
  Company Number: 163-21880-11012141

PATIENT
  Sex: Female

DRUGS (2)
  1. VELCADE [Suspect]
     Indication: MULTIPLE MYELOMA
  2. REVLIMID [Suspect]
     Indication: MULTIPLE MYELOMA
     Dosage: 10 MG, QD X 21 DAYS, PO
     Route: 048
     Dates: start: 20101001

REACTIONS (3)
  - DEEP VEIN THROMBOSIS [None]
  - WHITE BLOOD CELL COUNT DECREASED [None]
  - ASTHENIA [None]
